FAERS Safety Report 9430850 (Version 1)
Quarter: 2013Q3

REPORT INFORMATION
  Report Type: Report from Study
  Country: US (occurrence: US)
  Receive Date: 20130730
  Receipt Date: 20130730
  Transmission Date: 20140515
  Serious: No
  Sender: FDA-Public Use
  Company Number: US-ABBOTT-13P-163-1087658-00

PATIENT
  Age: 60 Year
  Sex: Male
  Weight: 99.88 kg

DRUGS (10)
  1. NIASPAN (COATED) [Suspect]
     Indication: BLOOD CHOLESTEROL INCREASED
     Dosage: AT BEDTIME
     Dates: start: 201205
  2. NIASPAN (COATED) [Suspect]
     Indication: BLOOD TRIGLYCERIDES INCREASED
  3. TRICOR [Concomitant]
     Indication: PRODUCT USED FOR UNKNOWN INDICATION
  4. SIMVASTATIN [Concomitant]
     Indication: PRODUCT USED FOR UNKNOWN INDICATION
  5. JANUVIA [Concomitant]
     Indication: PRODUCT USED FOR UNKNOWN INDICATION
  6. B COMPLEX VIT [Concomitant]
     Indication: PRODUCT USED FOR UNKNOWN INDICATION
  7. MULTIVITAMIN [Concomitant]
     Indication: PRODUCT USED FOR UNKNOWN INDICATION
  8. ASA [Concomitant]
     Indication: PRODUCT USED FOR UNKNOWN INDICATION
  9. LISINOPRIL [Concomitant]
     Indication: PRODUCT USED FOR UNKNOWN INDICATION
  10. GLIMEPIRIDE [Concomitant]
     Indication: PRODUCT USED FOR UNKNOWN INDICATION

REACTIONS (3)
  - Hot flush [Recovered/Resolved]
  - Paraesthesia [Recovered/Resolved]
  - Blood glucose increased [Recovered/Resolved]
